FAERS Safety Report 4869712-X (Version None)
Quarter: 2005Q4

REPORT INFORMATION
  Report Type: 
  Country: None (occurrence: None)
  Receive Date: 20051223
  Receipt Date: 20051214
  Transmission Date: 20060501
  Serious: No
  Sender: FDA-Public Use
  Company Number: CLOF-10176

PATIENT
  Sex: Female

DRUGS (5)
  1. CLOFARABINE [Suspect]
     Indication: ACUTE MYELOID LEUKAEMIA
     Dosage: 52 MG QD X 5 IV
     Route: 042
     Dates: start: 20051114, end: 20051118
  2. FUROSEMIDE [Concomitant]
  3. TAZOCIN [Concomitant]
  4. GENTAMICIN [Concomitant]
  5. FUROSEMIDE [Concomitant]

REACTIONS (3)
  - DIALYSIS [None]
  - PNEUMONIA [None]
  - RENAL FAILURE ACUTE [None]
